FAERS Safety Report 8836622 (Version 1)
Quarter: 2012Q4

REPORT INFORMATION
  Report Type: Spontaneous
  Country: NZ (occurrence: None)
  Receive Date: 20121010
  Receipt Date: 20121010
  Transmission Date: 20130627
  Serious: Yes (Hospitalization)
  Sender: FDA-Public Use
  Company Number: 2012P1060130

PATIENT
  Age: 77 Year
  Sex: Female

DRUGS (6)
  1. DILTIAZEM [Suspect]
  2. BENDROFLUMETHIAZIDE [Concomitant]
  3. ASPIRIN [Concomitant]
  4. GLYCERYL [Concomitant]
  5. TRINITRATE [Concomitant]
  6. SIMVASTATIN [Concomitant]

REACTIONS (1)
  - Parkinsonism [None]
